FAERS Safety Report 6393324-2 (Version None)
Quarter: 2009Q4

REPORT INFORMATION
  Report Type: 
  Country: None (occurrence: None)
  Receive Date: 20091008
  Receipt Date: 20090930
  Transmission Date: 20100525
  Serious: Yes (Hospitalization)
  Sender: FDA-Public Use
  Company Number: PHHY2009MX42382

PATIENT
  Age: 75 Year
  Sex: Female

DRUGS (1)
  1. DIOVAN HCT [Suspect]
     Indication: HYPERTENSION
     Dosage: 1 TABLET (160/12.5 MG) PER DAY
     Dates: start: 20070101, end: 20090701

REACTIONS (4)
  - BLOOD PRESSURE DECREASED [None]
  - FALL [None]
  - HIP ARTHROPLASTY [None]
  - SURGERY [None]
